FAERS Safety Report 18089814 (Version 1)
Quarter: 2020Q3

REPORT INFORMATION
  Report Type: Other
  Country: ES (occurrence: ES)
  Receive Date: 20200730
  Receipt Date: 20200730
  Transmission Date: 20201103
  Serious: Yes (Other)
  Sender: FDA-Public Use
  Company Number: ES-CELLTRION INC.-2020ES024764

PATIENT

DRUGS (2)
  1. RITUXIMAB (UNKNOWN) [Suspect]
     Active Substance: RITUXIMAB
     Indication: PEMPHIGUS
     Dosage: 375 MG/M2 (FREQUENCY: TOTAL)
     Route: 042
     Dates: start: 20180209, end: 20180209
  2. RITUXIMAB (UNKNOWN) [Suspect]
     Active Substance: RITUXIMAB
     Dosage: 375 MG/M2 EVERY 7 DAYS
     Route: 042
     Dates: start: 20180209, end: 20180302

REACTIONS (5)
  - Product use issue [Unknown]
  - Infusion related reaction [Recovered/Resolved]
  - B-lymphocyte count decreased [Recovered/Resolved]
  - Throat irritation [Recovered/Resolved]
  - Cough [Recovered/Resolved]

NARRATIVE: CASE EVENT DATE: 20180209
